FAERS Safety Report 11252910 (Version 1)
Quarter: 2015Q3

REPORT INFORMATION
  Report Type: Report from Study
  Country: BR (occurrence: BR)
  Receive Date: 20150708
  Receipt Date: 20150708
  Transmission Date: 20151125
  Serious: Yes (Death, Other)
  Sender: FDA-Public Use
  Company Number: PHHY2015BR079542

PATIENT
  Age: 94 Year
  Sex: Female
  Weight: 50 kg

DRUGS (1)
  1. FORASEQ [Suspect]
     Active Substance: BUDESONIDE\FORMOTEROL FUMARATE
     Indication: ASTHMA
     Dosage: 1 DF, QD
     Route: 055
     Dates: start: 2000, end: 20150425

REACTIONS (8)
  - Malaise [Not Recovered/Not Resolved]
  - Mucosal dryness [Fatal]
  - Cardiopulmonary failure [Recovering/Resolving]
  - Asthma [Not Recovered/Not Resolved]
  - Arrhythmia [Recovering/Resolving]
  - Retching [Recovered/Resolved]
  - Intestinal obstruction [Fatal]
  - Cardio-respiratory arrest [Fatal]

NARRATIVE: CASE EVENT DATE: 201504
